FAERS Safety Report 16027180 (Version 1)
Quarter: 2019Q1

REPORT INFORMATION
  Report Type: Report from Study
  Country: None (occurrence: BR)
  Receive Date: 20190303
  Receipt Date: 20190303
  Transmission Date: 20190418
  Serious: Yes (Disabling)
  Sender: FDA-Public Use
  Company Number: BR-ABBVIE-19K-020-2684592-00

PATIENT
  Sex: Female

DRUGS (2)
  1. HUMIRA [Suspect]
     Active Substance: ADALIMUMAB
     Indication: PSORIATIC ARTHROPATHY
     Route: 058
     Dates: start: 20160810, end: 201810
  2. TECNOMET [Suspect]
     Active Substance: METHOTREXATE
     Indication: PRODUCT USED FOR UNKNOWN INDICATION
     Dosage: 2 AFTER EACH MEAL
     Route: 065

REACTIONS (13)
  - Feeding disorder [Recovered/Resolved]
  - Viral infection [Unknown]
  - Malaise [Not Recovered/Not Resolved]
  - Urinary incontinence [Unknown]
  - Gastrointestinal disorder [Unknown]
  - Blood pressure decreased [Unknown]
  - Sinusitis [Unknown]
  - Vomiting [Unknown]
  - Pyrexia [Unknown]
  - Bedridden [Unknown]
  - Bedridden [Recovered/Resolved]
  - Psychiatric symptom [Unknown]
  - Psoriasis [Unknown]
